FAERS Safety Report 8649628 (Version 2)
Quarter: 2013Q2

REPORT INFORMATION
  Report Type: Spontaneous
  Country: GB (occurrence: GB)
  Receive Date: 20120705
  Receipt Date: 20130626
  Transmission Date: 20140414
  Serious: Yes (Other)
  Sender: FDA-Public Use
  Company Number: GB-PFIZER INC-2012156663

PATIENT
  Age: 55 Year
  Sex: Female
  Weight: 59 kg

DRUGS (3)
  1. AMLODIPINE BESILATE [Suspect]
     Dosage: UNK
     Dates: start: 20120312
  2. RAMIPRIL [Concomitant]
     Dosage: UNK
     Dates: start: 20120312, end: 20120409
  3. NAPROXEN [Concomitant]
     Dosage: UNK
     Dates: start: 20120319, end: 20120416

REACTIONS (2)
  - Restless legs syndrome [Recovering/Resolving]
  - Arthralgia [Unknown]
